FAERS Safety Report 9204946 (Version 1)
Quarter: 2013Q1

REPORT INFORMATION
  Report Type: Spontaneous
  Country: US (occurrence: None)
  Receive Date: 20120709
  Receipt Date: 20120709
  Transmission Date: 20140127
  Serious: Yes (Other)
  Sender: FDA-Public Use
  Company Number: PHEH2012US000640

PATIENT
  Age: 64 Year
  Sex: Female

DRUGS (3)
  1. GLEEVEC (IMATINIB) UNKNOWN [Suspect]
     Route: 048
  2. CHEMOTHERAPEUTICS NOS [Suspect]
  3. NEUROTIN (NEUROTIN) [Concomitant]

REACTIONS (2)
  - Neuropathy peripheral [None]
  - Fatigue [None]
